FAERS Safety Report 18130550 (Version 1)
Quarter: 2020Q3

REPORT INFORMATION
  Report Type: Spontaneous
  Country: GB (occurrence: GB)
  Receive Date: 20200810
  Receipt Date: 20200810
  Transmission Date: 20201103
  Serious: Yes (Other)
  Sender: FDA-Public Use
  Company Number: GB-NOVOPROD-743323

PATIENT
  Sex: Female

DRUGS (1)
  1. KLIOVANCE [Suspect]
     Active Substance: ESTRADIOL\NORETHINDRONE ACETATE
     Indication: MENOPAUSAL SYMPTOMS
     Dosage: 84 MG
     Route: 048
     Dates: start: 20200514, end: 20200517

REACTIONS (2)
  - Hyperaesthesia teeth [Unknown]
  - Toothache [Unknown]

NARRATIVE: CASE EVENT DATE: 20200515
